FAERS Safety Report 14665314 (Version 1)
Quarter: 2018Q1

REPORT INFORMATION
  Report Type: Spontaneous
  Country: US (occurrence: US)
  Receive Date: 20180321
  Receipt Date: 20180321
  Transmission Date: 20180509
  Serious: Yes (Other)
  Sender: FDA-Public Use
  Company Number: US-BAYER-2018-055364

PATIENT
  Sex: Female

DRUGS (2)
  1. AFRIN NO DRIP SINUS PUMP MIST [Suspect]
     Active Substance: OXYMETAZOLINE HYDROCHLORIDE
     Indication: SINUS CONGESTION
     Dosage: UNK
  2. AFRIN NO DRIP SINUS PUMP MIST [Suspect]
     Active Substance: OXYMETAZOLINE HYDROCHLORIDE
     Indication: PARANASAL SINUS DISCOMFORT

REACTIONS (1)
  - Drug dependence [Unknown]
